FAERS Safety Report 5949225-4 (Version None)
Quarter: 2008Q4

REPORT INFORMATION
  Report Type: 
  Country: None (occurrence: None)
  Receive Date: 20081111
  Receipt Date: 20081103
  Transmission Date: 20090506
  Serious: Yes (Life-Threatening)
  Sender: FDA-Public Use
  Company Number: GB-MERCK-0809GBR00003

PATIENT
  Age: 67 Year
  Sex: Female

DRUGS (3)
  1. FOSAMAX [Suspect]
     Indication: OSTEOPOROSIS
     Route: 048
     Dates: start: 20080625
  2. ANASTROZOLE [Suspect]
     Indication: BREAST CANCER
     Route: 065
     Dates: start: 20080609, end: 20080801
  3. CHOLECALCIFEROL AND CALCIUM CARBONATE [Concomitant]
     Indication: OSTEOPOROSIS
     Route: 048
     Dates: start: 20080609

REACTIONS (1)
  - APLASTIC ANAEMIA [None]
